FAERS Safety Report 4334743-5 (Version None)
Quarter: 2004Q2

REPORT INFORMATION
  Report Type: 
  Country: None (occurrence: None)
  Receive Date: 20040408
  Receipt Date: 20040319
  Transmission Date: 20050107
  Serious: Yes (Other)
  Sender: FDA-Public Use
  Company Number: US-BRISTOL-MYERS SQUIBB COMPANY-12553228

PATIENT
  Sex: Male

DRUGS (2)
  1. METAGLIP [Suspect]
     Indication: DIABETES MELLITUS
  2. ACTOS [Concomitant]

REACTIONS (1)
  - CONVULSION [None]
